FAERS Safety Report 6758995-7 (Version None)
Quarter: 2010Q2

REPORT INFORMATION
  Report Type: 
  Country: None (occurrence: None)
  Receive Date: 20100603
  Receipt Date: 20100520
  Transmission Date: 20101027
  Serious: Yes (Other)
  Sender: FDA-Public Use
  Company Number: 1000014098

PATIENT

DRUGS (1)
  1. ESCITALOPRAM [Suspect]
     Dosage: TRANSMAMMARY
     Route: 063

REACTIONS (2)
  - DRUG EXPOSURE VIA BREAST MILK [None]
  - NEUTROPENIA [None]
